FAERS Safety Report 25192380 (Version 1)
Quarter: 2025Q2

REPORT INFORMATION
  Report Type: Other
  Country: US (occurrence: US)
  Receive Date: 20250414
  Receipt Date: 20250414
  Transmission Date: 20250716
  Serious: Yes (Life-Threatening, Hospitalization, Other)
  Sender: LYNE LABORATORIES
  Company Number: US-Lyne Laboratories Inc.-2174819

PATIENT
  Age: 34 Year
  Sex: Female

DRUGS (4)
  1. DEXAMETHASONE [Suspect]
     Active Substance: DEXAMETHASONE
     Indication: Neurosarcoidosis
  2. PREDNISONE [Suspect]
     Active Substance: PREDNISONE
  3. ACETAZOLAMIDE [Concomitant]
     Active Substance: ACETAZOLAMIDE
  4. METHYLPREDNISOLONE [Suspect]
     Active Substance: METHYLPREDNISOLONE

REACTIONS (2)
  - Meningitis [Recovering/Resolving]
  - Hydrocephalus [Recovering/Resolving]
